FAERS Safety Report 9223652 (Version 3)
Quarter: 2013Q3

REPORT INFORMATION
  Report Type: Spontaneous
  Country: FR (occurrence: FR)
  Receive Date: 20130410
  Receipt Date: 20130716
  Transmission Date: 20140515
  Serious: Yes (Disabling, Other)
  Sender: FDA-Public Use
  Company Number: FR-PFIZER INC-2013087589

PATIENT
  Age: 50 Year
  Sex: Male
  Weight: 97 kg

DRUGS (3)
  1. ZITHROMAX [Suspect]
     Indication: PERTUSSIS
     Dosage: 500 MG, 3X/DAY
  2. ZITHROMAX [Suspect]
     Indication: CYTOMEGALOVIRUS INFECTION
  3. ZITHROMAX [Suspect]
     Indication: INFECTIOUS MONONUCLEOSIS

REACTIONS (5)
  - Off label use [Unknown]
  - Circumstance or information capable of leading to medication error [Unknown]
  - Chronic lymphocytic leukaemia [Not Recovered/Not Resolved]
  - Nausea [Not Recovered/Not Resolved]
  - Malaise [Not Recovered/Not Resolved]
